FAERS Safety Report 5589373-4 (Version None)
Quarter: 2008Q1

REPORT INFORMATION
  Report Type: 
  Country: None (occurrence: None)
  Receive Date: 20080114
  Receipt Date: 20080110
  Transmission Date: 20080703
  Serious: Yes (Hospitalization)
  Sender: FDA-Public Use
  Company Number: JP-SP-2008-00085

PATIENT
  Age: 78 Year
  Sex: Male

DRUGS (3)
  1. IMMUCYST [Suspect]
     Indication: BLADDER CANCER
     Route: 043
     Dates: start: 20071030
  2. TOSUFLOXACIN TOSILATE [Concomitant]
     Dates: start: 20071024, end: 20071104
  3. SODIUM AZULENE SULFONATE L GLUTAMINE [Concomitant]
     Dates: start: 20071024, end: 20071104

REACTIONS (1)
  - PYREXIA [None]
